FAERS Safety Report 23970319 (Version 1)
Quarter: 2024Q2

REPORT INFORMATION
  Report Type: Report from Study
  Country: US (occurrence: US)
  Receive Date: 20240613
  Receipt Date: 20240613
  Transmission Date: 20240716
  Serious: Yes (Other)
  Sender: FDA-Public Use
  Company Number: US-UCBSA-2024004445

PATIENT
  Age: 51 Year
  Sex: Male

DRUGS (1)
  1. BRIVARACETAM [Suspect]
     Active Substance: BRIVARACETAM
     Indication: Seizure
     Dosage: 100 MILLIGRAM, 1 TABLET BID

REACTIONS (7)
  - Seizure [Unknown]
  - Stress [Not Recovered/Not Resolved]
  - Visual impairment [Unknown]
  - Vomiting [Not Recovered/Not Resolved]
  - Therapy interrupted [Unknown]
  - Product availability issue [Unknown]
  - Extra dose administered [Unknown]

NARRATIVE: CASE EVENT DATE: 20240610
